FAERS Safety Report 7736091-X (Version None)
Quarter: 2011Q3

REPORT INFORMATION
  Report Type: 
  Country: None (occurrence: None)
  Receive Date: 20110908
  Receipt Date: 20110901
  Transmission Date: 20111222
  Serious: Yes (Hospitalization)
  Sender: FDA-Public Use
  Company Number: AR-AMGEN-ARGSP2011040346

PATIENT
  Age: 36 Year
  Sex: Female
  Weight: 90 kg

DRUGS (3)
  1. ENBREL [Suspect]
     Indication: PSORIATIC ARTHROPATHY
     Dosage: 50 MG, WEEKLY
     Route: 058
     Dates: start: 20090610, end: 20101101
  2. ENBREL [Suspect]
     Dosage: UNK
     Dates: start: 20110320
  3. LOTRIAL                            /00935901/ [Concomitant]
     Dosage: 5 MG, UNK

REACTIONS (2)
  - OVERWEIGHT [None]
  - RASH [None]
